FAERS Safety Report 26041299 (Version 1)
Quarter: 2025Q4

REPORT INFORMATION
  Report Type: Spontaneous
  Country: PR (occurrence: PR)
  Receive Date: 20251113
  Receipt Date: 20251113
  Transmission Date: 20260117
  Serious: No
  Sender: ALIMERA
  Company Number: PR-ALIMERA SCIENCES INC.-PR-A16013-23-000276

PATIENT
  Age: 73 Year
  Sex: Female

DRUGS (1)
  1. ILUVIEN [Suspect]
     Active Substance: FLUOCINOLONE ACETONIDE
     Indication: Diabetic retinal oedema
     Dosage: 0.25 MICROGRAM, QD, -UNKNOWN EYE
     Route: 031
     Dates: start: 20231011

REACTIONS (3)
  - Device difficult to use [Unknown]
  - Device failure [Unknown]
  - Circumstance or information capable of leading to medication error [Unknown]

NARRATIVE: CASE EVENT DATE: 20231011
